FAERS Safety Report 9367538 (Version 1)
Quarter: 2013Q2

REPORT INFORMATION
  Report Type: Spontaneous
  Country: US (occurrence: US)
  Receive Date: 20130625
  Receipt Date: 20130625
  Transmission Date: 20140414
  Serious: No
  Sender: FDA-Public Use
  Company Number: US-ASTELLAS-2012US007309

PATIENT
  Age: 80 Year
  Sex: Male

DRUGS (2)
  1. VESICARE [Suspect]
     Indication: MICTURITION URGENCY
     Dosage: 5 MG, UID/QD
     Route: 048
  2. VESICARE [Suspect]
     Dosage: 10 MG, UID/QD
     Route: 048

REACTIONS (4)
  - Drug ineffective [Unknown]
  - Local swelling [Recovered/Resolved]
  - Face oedema [Recovered/Resolved]
  - Pharyngeal oedema [Recovered/Resolved]
